FAERS Safety Report 9818804 (Version 3)
Quarter: 2014Q3

REPORT INFORMATION
  Report Type: Spontaneous
  Country: US (occurrence: US)
  Receive Date: 20140115
  Receipt Date: 20140711
  Transmission Date: 20150326
  Serious: Yes (Hospitalization, Other)
  Sender: FDA-Public Use
  Company Number: US-MERCK-1401USA005645

PATIENT
  Sex: Female
  Weight: 70.3 kg

DRUGS (1)
  1. JANUVIA [Suspect]
     Active Substance: SITAGLIPTIN PHOSPHATE
     Indication: TYPE 2 DIABETES MELLITUS
     Dosage: 50 MG, QD
     Route: 048
     Dates: start: 20120412, end: 20130203

REACTIONS (38)
  - Pancreatectomy [Unknown]
  - Hypertension [Unknown]
  - Spinal osteoarthritis [Unknown]
  - Splenectomy [Unknown]
  - Hypercholesterolaemia [Unknown]
  - Cataract [Unknown]
  - Aortic arteriosclerosis [Unknown]
  - Cholelithiasis [Unknown]
  - Biopsy breast [Unknown]
  - Insomnia [Unknown]
  - Depression [Unknown]
  - Dizziness [Unknown]
  - Enostosis [Unknown]
  - Hiatus hernia [Unknown]
  - Gastric ulcer [Unknown]
  - Splenic cyst [Unknown]
  - Asthma [Unknown]
  - Pollakiuria [Unknown]
  - Hepatic lesion [Unknown]
  - Urinary incontinence [Unknown]
  - Dyspnoea [Unknown]
  - Asthenia [Unknown]
  - Computerised tomogram thorax abnormal [Unknown]
  - Pulmonary granuloma [Unknown]
  - Diverticulum [Unknown]
  - Gastritis [Unknown]
  - Breast cyst [Unknown]
  - Renal cyst [Unknown]
  - Pancreatic neuroendocrine tumour [Unknown]
  - Cholecystectomy [Unknown]
  - Colon adenoma [Unknown]
  - Adrenal haematoma [Unknown]
  - Myalgia [Unknown]
  - Cataract operation [Unknown]
  - Hypertriglyceridaemia [Unknown]
  - Breast cyst drainage [Unknown]
  - Polyarthritis [Unknown]
  - Goitre [Unknown]

NARRATIVE: CASE EVENT DATE: 2012
